FAERS Safety Report 5156549-X (Version None)
Quarter: 2006Q4

REPORT INFORMATION
  Report Type: 
  Country: None (occurrence: None)
  Receive Date: 20061122
  Receipt Date: 20061113
  Transmission Date: 20070319
  Serious: Yes (Life-Threatening, Hospitalization, Other)
  Sender: FDA-Public Use
  Company Number: CZ-ABBOTT-06P-217-0350337-00

PATIENT
  Sex: Female
  Weight: 90 kg

DRUGS (25)
  1. ZEMPLAR [Suspect]
     Indication: HYPERPARATHYROIDISM SECONDARY
     Route: 042
     Dates: start: 20060415
  2. FUROSEMIDE [Concomitant]
     Indication: CARDIAC FAILURE
     Route: 048
  3. FUROSEMIDE [Concomitant]
     Dosage: 250 3 X 1
  4. MOLSIDOMINE [Concomitant]
     Indication: MYOCARDIAL ISCHAEMIA
     Route: 048
  5. AGEN [Concomitant]
     Indication: HYPERTENSION
     Route: 048
     Dates: end: 20060825
  6. AMINOPHYLLINE [Concomitant]
     Indication: BRONCHITIS CHRONIC
     Route: 048
     Dates: start: 20060902
  7. AMINOPHYLLINE [Concomitant]
     Dosage: 200 1-0-1
  8. WARFARIN SODIUM [Concomitant]
     Indication: DRUG USE FOR UNKNOWN INDICATION
  9. FRAXIAPRIN [Concomitant]
     Indication: DRUG USE FOR UNKNOWN INDICATION
     Route: 058
  10. ENALAPRIL MALEATE [Concomitant]
     Indication: DRUG USE FOR UNKNOWN INDICATION
  11. ENALAPRIL MALEATE [Concomitant]
     Dosage: 10 2 X 1
  12. CYNT [Concomitant]
     Indication: DRUG USE FOR UNKNOWN INDICATION
  13. MIKARDIS [Concomitant]
     Indication: DRUG USE FOR UNKNOWN INDICATION
  14. LEVOTHYROXINE SODIUM [Concomitant]
     Indication: DRUG USE FOR UNKNOWN INDICATION
  15. LEVOTHYROXINE SODIUM [Concomitant]
     Dosage: 50 1 X 1
  16. TORVACARD [Concomitant]
     Indication: DRUG USE FOR UNKNOWN INDICATION
  17. TORVACARD [Concomitant]
     Dosage: 20 1 X 1
  18. CALCIUM CARBONATE [Concomitant]
     Indication: DRUG USE FOR UNKNOWN INDICATION
  19. CALCIUM CARBONATE [Concomitant]
     Dosage: 3 X 1
  20. GODASAL [Concomitant]
     Indication: DRUG USE FOR UNKNOWN INDICATION
  21. GODASAL [Concomitant]
     Dosage: 100 1 X 1
  22. FERRIECIT [Concomitant]
     Indication: DRUG USE FOR UNKNOWN INDICATION
  23. EPOETIN BETA [Concomitant]
     Indication: DRUG USE FOR UNKNOWN INDICATION
  24. ATRAM [Concomitant]
     Indication: DRUG USE FOR UNKNOWN INDICATION
     Dosage: 25 2 X 1
  25. DIGOXIN [Concomitant]
     Indication: DRUG USE FOR UNKNOWN INDICATION

REACTIONS (11)
  - ATRIAL FIBRILLATION [None]
  - CARDIAC FAILURE [None]
  - CHEST PAIN [None]
  - DYSPNOEA [None]
  - INFLAMMATION [None]
  - INTRA-ABDOMINAL HAEMORRHAGE [None]
  - OEDEMA [None]
  - PELVIC MASS [None]
  - PULSE ABSENT [None]
  - URINARY TRACT INFECTION [None]
  - VARICOSE ULCERATION [None]
